FAERS Safety Report 21935100 (Version 1)
Quarter: 2023Q1

REPORT INFORMATION
  Report Type: Spontaneous
  Country: US (occurrence: US)
  Receive Date: 20230201
  Receipt Date: 20230201
  Transmission Date: 20230417
  Serious: Yes (Hospitalization, Other)
  Sender: FDA-Public Use
  Company Number: US-CPL-003230

PATIENT
  Age: 74 Year
  Sex: Female

DRUGS (18)
  1. HYDRALAZINE [Suspect]
     Active Substance: HYDRALAZINE HYDROCHLORIDE
     Indication: Hypertension
     Dosage: LONG-TERM HYDRALAZINE USE (OVER 8 YEARS)
  2. AMLODIPINE [Concomitant]
     Active Substance: AMLODIPINE BESYLATE
  3. ASPIRIN [Concomitant]
     Active Substance: ASPIRIN
  4. BISACODYL [Concomitant]
     Active Substance: BISACODYL
  5. CALCIUM CARBONATE [Concomitant]
     Active Substance: CALCIUM CARBONATE
  6. CARVEDILOL [Concomitant]
     Active Substance: CARVEDILOL
  7. CLONIDINE [Concomitant]
     Active Substance: CLONIDINE
  8. CLOPIDOGREL [Concomitant]
     Active Substance: CLOPIDOGREL BISULFATE
  9. DOCUSATE SODIUM [Concomitant]
     Active Substance: DOCUSATE SODIUM
  10. FAMOTIDINE [Concomitant]
     Active Substance: FAMOTIDINE
  11. GABAPENTIN [Concomitant]
     Active Substance: GABAPENTIN
  12. GUAIFENESIN [Concomitant]
     Active Substance: GUAIFENESIN
  13. ISOSORBIDE MONONITRATE [Concomitant]
     Active Substance: ISOSORBIDE MONONITRATE
  14. LATANOPROST [Concomitant]
     Active Substance: LATANOPROST
  15. LORATADINE [Concomitant]
     Active Substance: LORATADINE
  16. MEROPENEM [Concomitant]
     Active Substance: MEROPENEM
  17. VANCOMYCIN [Concomitant]
     Active Substance: VANCOMYCIN
  18. TAMIFLU [Concomitant]
     Active Substance: OSELTAMIVIR PHOSPHATE

REACTIONS (1)
  - Glomerulonephritis rapidly progressive [Recovered/Resolved]
